FAERS Safety Report 4934952-8 (Version None)
Quarter: 2006Q1

REPORT INFORMATION
  Report Type: 
  Country: None (occurrence: None)
  Receive Date: 20060303
  Receipt Date: 20060303
  Transmission Date: 20060701
  Serious: Yes (Life-Threatening)
  Sender: FDA-Public Use
  Company Number: None

PATIENT
  Sex: Male
  Weight: 73.6 kg

DRUGS (7)
  1. REVLIMID [Suspect]
     Indication: GLIOBLASTOMA
     Dosage: 30 MG  QD   PO
     Route: 048
     Dates: start: 20060117, end: 20060302
  2. DEXAMETHASONE [Concomitant]
  3. KEPPRA [Concomitant]
  4. ENALAPRIL MALEATE [Concomitant]
  5. ATENOLOL [Concomitant]
  6. SIMVASTATIN [Concomitant]
  7. METFORMIN [Concomitant]

REACTIONS (5)
  - BLOOD GLUCOSE INCREASED [None]
  - DEHYDRATION [None]
  - HEADACHE [None]
  - POLYURIA [None]
  - SPEECH DISORDER [None]
